FAERS Safety Report 25461826 (Version 1)
Quarter: 2025Q2

REPORT INFORMATION
  Report Type: Spontaneous
  Country: US (occurrence: US)
  Receive Date: 20250620
  Receipt Date: 20250620
  Transmission Date: 20250716
  Serious: No
  Sender: JOHNSON AND JOHNSON
  Company Number: US-JNJFOC-20250619952

PATIENT
  Sex: Female

DRUGS (2)
  1. XARELTO [Suspect]
     Active Substance: RIVAROXABAN
     Indication: Atrial fibrillation
     Route: 048
     Dates: start: 20250613
  2. XARELTO [Suspect]
     Active Substance: RIVAROXABAN
     Indication: Cerebrovascular accident prophylaxis

REACTIONS (5)
  - Haemorrhoidal haemorrhage [Unknown]
  - Feeling cold [Unknown]
  - Feeling hot [Unknown]
  - Sleep disorder [Unknown]
  - Limb immobilisation [Unknown]

NARRATIVE: CASE EVENT DATE: 20250101
